FAERS Safety Report 19304007 (Version 2)
Quarter: 2021Q3

REPORT INFORMATION
  Report Type: Spontaneous
  Country: US (occurrence: US)
  Receive Date: 20210525
  Receipt Date: 20210722
  Transmission Date: 20211014
  Serious: Yes (Other)
  Sender: FDA-Public Use
  Company Number: US-CELGENEUS-USA-20210505156

PATIENT
  Sex: Female
  Weight: 48.58 kg

DRUGS (1)
  1. REVLIMID [Suspect]
     Active Substance: LENALIDOMIDE
     Indication: PLASMA CELL MYELOMA
     Dosage: 10 MILLIGRAM
     Route: 048
     Dates: start: 20210423

REACTIONS (4)
  - Dry mouth [Unknown]
  - Haematochezia [Unknown]
  - Lip dry [Unknown]
  - Lip swelling [Unknown]

NARRATIVE: CASE EVENT DATE: 2021
